FAERS Safety Report 8022777-9 (Version None)
Quarter: 2012Q1

REPORT INFORMATION
  Report Type: 
  Country: None (occurrence: None)
  Receive Date: 20120104
  Receipt Date: 20111227
  Transmission Date: 20120608
  Serious: Yes (Other)
  Sender: FDA-Public Use
  Company Number: JP-MERCK-1111USA01685

PATIENT
  Age: 58 Year
  Sex: Female

DRUGS (5)
  1. PREDNISOLONE [Suspect]
     Route: 048
     Dates: start: 19930101
  2. METHOTREXATE [Concomitant]
     Indication: MUSCULOSKELETAL PAIN
     Route: 065
  3. RIMATIL [Concomitant]
     Indication: MUSCULOSKELETAL PAIN
     Route: 048
  4. FOSAMAX [Suspect]
     Indication: OSTEOPOROSIS
     Route: 048
     Dates: start: 20061218, end: 20090119
  5. ACTONEL [Suspect]
     Indication: OSTEOPOROSIS
     Route: 048
     Dates: start: 20051031, end: 20071022

REACTIONS (1)
  - OSTEOMYELITIS [None]
